FAERS Safety Report 12470406 (Version 3)
Quarter: 2016Q3

REPORT INFORMATION
  Report Type: Report from Study
  Country: TR (occurrence: TR)
  Receive Date: 20160616
  Receipt Date: 20160721
  Transmission Date: 20161109
  Serious: Yes (Death, Hospitalization)
  Sender: FDA-Public Use
  Company Number: TR-ROCHE-1490457

PATIENT
  Age: 76 Year
  Sex: Male
  Weight: 51.6 kg

DRUGS (28)
  1. DEXKETOPROFEN TROMETAMOL [Concomitant]
     Active Substance: DEXKETOPROFEN TROMETAMOL
     Indication: PAIN
     Route: 048
     Dates: start: 20140101
  2. PREDNISOLONE. [Concomitant]
     Active Substance: PREDNISOLONE
     Indication: ATRIAL FIBRILLATION
     Route: 042
     Dates: start: 20150310, end: 20150310
  3. BISOPROLOL FUMARATE. [Concomitant]
     Active Substance: BISOPROLOL FUMARATE
     Route: 048
     Dates: start: 20150228, end: 20150309
  4. BISOPROLOL FUMARATE. [Concomitant]
     Active Substance: BISOPROLOL FUMARATE
     Route: 048
     Dates: start: 20150310
  5. ENOXAPARIN SODIUM. [Concomitant]
     Active Substance: ENOXAPARIN SODIUM
     Route: 042
     Dates: start: 20150109, end: 20150116
  6. PHENIRAMINE [Concomitant]
     Active Substance: PHENIRAMINE
     Route: 048
     Dates: start: 20141228, end: 20141229
  7. PHENIRAMINE [Concomitant]
     Active Substance: PHENIRAMINE
     Route: 048
     Dates: start: 20141230, end: 20141230
  8. METAMIZOLE SODIUM [Concomitant]
     Active Substance: METAMIZOLE SODIUM
     Indication: PAIN
     Route: 048
     Dates: start: 20141217
  9. ESCITALOPRAM [Concomitant]
     Active Substance: ESCITALOPRAM OXALATE
     Indication: DEPRESSION
     Route: 048
     Dates: start: 20141217, end: 20150211
  10. DILTIAZEM HCL [Concomitant]
     Active Substance: DILTIAZEM HYDROCHLORIDE
     Indication: ATRIAL FIBRILLATION
     Route: 048
     Dates: start: 20150310, end: 20150311
  11. CETRIZINE [Concomitant]
     Active Substance: CETIRIZINE HYDROCHLORIDE
     Indication: PRURITUS
     Route: 048
     Dates: start: 20141227, end: 20141228
  12. ENOXAPARIN SODIUM. [Concomitant]
     Active Substance: ENOXAPARIN SODIUM
     Route: 030
     Dates: start: 20150214, end: 20150215
  13. DIGOXIN. [Concomitant]
     Active Substance: DIGOXIN
     Indication: ATRIAL FIBRILLATION
     Route: 042
     Dates: start: 20150310, end: 20150310
  14. BISOPROLOL FUMARATE. [Concomitant]
     Active Substance: BISOPROLOL FUMARATE
     Indication: ATRIAL FIBRILLATION
     Route: 048
     Dates: start: 20150211, end: 20150227
  15. ENOXAPARIN SODIUM. [Concomitant]
     Active Substance: ENOXAPARIN SODIUM
     Route: 030
     Dates: start: 20150216
  16. LACTULOSE. [Concomitant]
     Active Substance: LACTULOSE
     Indication: CONSTIPATION
     Route: 048
     Dates: start: 20150304
  17. DILTIAZEM HCL [Concomitant]
     Active Substance: DILTIAZEM HYDROCHLORIDE
     Route: 042
     Dates: start: 20150310, end: 20150310
  18. METOPROLOL TARTRATE. [Concomitant]
     Active Substance: METOPROLOL TARTRATE
     Indication: ATRIAL FIBRILLATION
     Route: 042
     Dates: start: 20150310, end: 20150310
  19. ENOXAPARIN SODIUM. [Concomitant]
     Active Substance: ENOXAPARIN SODIUM
     Indication: PROPHYLAXIS
     Route: 042
     Dates: start: 20150211, end: 20150213
  20. ACETYLCYSTEINE. [Concomitant]
     Active Substance: ACETYLCYSTEINE
     Indication: PNEUMONIA
     Route: 048
     Dates: start: 20141120, end: 20141212
  21. FAMOTIDINE. [Concomitant]
     Active Substance: FAMOTIDINE
     Route: 048
     Dates: start: 20141120, end: 20141212
  22. TRANEXAMIC ACID. [Concomitant]
     Active Substance: TRANEXAMIC ACID
     Indication: HAEMOPTYSIS
     Route: 048
     Dates: start: 20140727, end: 20141112
  23. DOLADAMON [Concomitant]
     Indication: PAIN
     Route: 048
     Dates: start: 20141027
  24. MOXIFLOXACIN. [Concomitant]
     Active Substance: MOXIFLOXACIN
     Indication: PNEUMONIA
     Route: 048
     Dates: start: 20141104, end: 20141112
  25. PHENIRAMINE [Concomitant]
     Active Substance: PHENIRAMINE
     Indication: PRURITUS
     Route: 048
     Dates: start: 20141231, end: 20150211
  26. IPRATROPIUM BROMIDE/SALBUTAMOL SULFATE [Concomitant]
     Active Substance: ALBUTEROL SULFATE\IPRATROPIUM BROMIDE
     Indication: PNEUMONIA
     Route: 050
     Dates: start: 20141120, end: 20141212
  27. ATEZOLIZUMAB [Suspect]
     Active Substance: ATEZOLIZUMAB
     Indication: NON-SMALL CELL LUNG CANCER
     Dosage: MOST RECENT DOSE PRIOR TO PLEURAL FISTULATION WAS ON 22/OCT/2014 AT 1200MG?MOST RECENT DOSE PRIOR TO
     Route: 042
     Dates: start: 20141001
  28. MOXIFLOXACIN. [Concomitant]
     Active Substance: MOXIFLOXACIN
     Indication: LUNG INFECTION
     Route: 048
     Dates: start: 20150107, end: 20150120

REACTIONS (3)
  - Pneumonia [Recovered/Resolved]
  - Pleural fistula [Recovered/Resolved]
  - Pneumonia aspiration [Fatal]

NARRATIVE: CASE EVENT DATE: 20141112
